FAERS Safety Report 15018075 (Version 1)
Quarter: 2018Q2

REPORT INFORMATION
  Report Type: Spontaneous
  Country: TR (occurrence: TR)
  Receive Date: 20180615
  Receipt Date: 20180615
  Transmission Date: 20180711
  Serious: Yes (Other)
  Sender: FDA-Public Use
  Company Number: TR-MYLANLABS-2018M1041241

PATIENT
  Age: 32 Year
  Sex: Female

DRUGS (12)
  1. LEVOTHYROXINE. [Suspect]
     Active Substance: LEVOTHYROXINE
     Dosage: UNSPECIFIED DOSE
     Route: 054
  2. LEVOTHYROXINE. [Suspect]
     Active Substance: LEVOTHYROXINE
     Indication: PRODUCT USED FOR UNKNOWN INDICATION
     Dosage: 200 ?G, QD, DOSE INCREASED TO 500 MICROGRAM BY A WEEKLY INTERVAL
     Route: 030
     Dates: start: 201211
  3. TRIIODOTHYRONINE [Concomitant]
     Active Substance: LIOTHYRONINE SODIUM
     Dosage: 75 ?G
     Route: 065
  4. LEVOTHYROXINE. [Suspect]
     Active Substance: LEVOTHYROXINE
     Dosage: 1000 MICROGRAM ON THE DAY OF LEVOTHYROXINE ABSORPTION TEST; SWITCHED TO 450 MICROGRAM FOLLOWING N
     Route: 048
     Dates: start: 2008
  5. LEVOTHYROXINE. [Suspect]
     Active Substance: LEVOTHYROXINE
     Dosage: 500 ?G, Q2W
     Route: 065
  6. LEVOTHYROXINE. [Suspect]
     Active Substance: LEVOTHYROXINE
     Indication: PRODUCT USED FOR UNKNOWN INDICATION
     Dosage: 400?G,QD,DOSE INCREASED TO 1000 MICROGRAM FOR LEVOTHYROXINE ABSORPTION TEST; FOLLOWED BY IV DRUG USE
     Route: 048
     Dates: start: 2008
  7. LEVOTHYROXINE. [Suspect]
     Active Substance: LEVOTHYROXINE
     Dosage: UNSPECIFIED DOSE
     Route: 067
  8. LEVOTHYROXINE. [Suspect]
     Active Substance: LEVOTHYROXINE
     Dosage: 500, ?G, QD, DOSE INCREASED TO 1000 MICROGRAM BY A WEEKLY INTERVAL
     Route: 030
     Dates: start: 201211
  9. LEVOTHYROXINE. [Suspect]
     Active Substance: LEVOTHYROXINE
     Dosage: 1000, ?G, QD, DOSE INCREASED TO 1200 MICROGRAM BY A WEEKLY INTERVAL
     Route: 030
     Dates: start: 201212
  10. TRIIODOTHYRONINE [Concomitant]
     Active Substance: LIOTHYRONINE SODIUM
     Indication: PRODUCT USED FOR UNKNOWN INDICATION
     Dosage: STARTED AT AN UNSPECIFIED DOSE; AFTER NEUROOLOGIC SIDE EFFECTS DURING LEVOTHYROXINE ABSORPTION TE...
     Route: 065
  11. LEVOTHYROXINE. [Suspect]
     Active Substance: LEVOTHYROXINE
     Dosage: 500 ?G, UNK
     Route: 042
     Dates: start: 2011
  12. LEVOTHYROXINE. [Suspect]
     Active Substance: LEVOTHYROXINE
     Dosage: DOSE CHANGED TO TO 500 MICROGRAM TWICE A WEEK FOLLOWING NEUROLOGIC SIDE EFFECT (LEFT-SIDED LOSS O...
     Route: 030
     Dates: start: 201212

REACTIONS (6)
  - Hypertension [Recovered/Resolved]
  - Hemiparesis [Recovered/Resolved]
  - Dysarthria [Recovered/Resolved]
  - Paraesthesia [Recovered/Resolved]
  - Asthenia [Recovered/Resolved]
  - Transient ischaemic attack [Recovered/Resolved]

NARRATIVE: CASE EVENT DATE: 2008
